FAERS Safety Report 6643556-0 (Version None)
Quarter: 2010Q1

REPORT INFORMATION
  Report Type: 
  Country: None (occurrence: None)
  Receive Date: 20100320
  Receipt Date: 20100312
  Transmission Date: 20100710
  Serious: Yes (Other)
  Sender: FDA-Public Use
  Company Number: CI-B.I. PHARMACEUTICALS,INC./RIDGEFIELD-2010-DE-01636GD

PATIENT
  Sex: Female

DRUGS (6)
  1. NEVIRAPINE [Suspect]
     Indication: HUMAN IMMUNODEFICIENCY VIRUS TRANSMISSION
     Dosage: 200 MG
  2. NEVIRAPINE [Suspect]
     Indication: PROPHYLAXIS
  3. ZIDOVUDINE [Suspect]
     Indication: HUMAN IMMUNODEFICIENCY VIRUS TRANSMISSION
     Dosage: 600 MG
  4. ZIDOVUDINE [Suspect]
     Indication: PROPHYLAXIS
  5. EMTRICITABINE/TENOFOVIR DISOPROXIL FUMARATE [Suspect]
     Indication: HUMAN IMMUNODEFICIENCY VIRUS TRANSMISSION
     Dosage: 2 ANZ
     Route: 048
  6. EMTRICITABINE/TENOFOVIR DISOPROXIL FUMARATE [Suspect]
     Indication: PROPHYLAXIS

REACTIONS (1)
  - LEUKOPENIA [None]
